FAERS Safety Report 23868181 (Version 1)
Quarter: 2024Q2

REPORT INFORMATION
  Report Type: Spontaneous
  Country: US (occurrence: None)
  Receive Date: 20240516
  Receipt Date: 20240516
  Transmission Date: 20240716
  Serious: Yes (Disabling)
  Sender: FDA-Public Use
  Company Number: None

PATIENT
  Age: 52 Year
  Sex: Female
  Weight: 72.9 kg

DRUGS (4)
  1. EMGALITY [Suspect]
     Active Substance: GALCANEZUMAB-GNLM
     Indication: Migraine
     Dosage: OTHER FREQUENCY : EVERY 28 DAYS;?
     Route: 058
     Dates: start: 20240113, end: 20240421
  2. ELIQUIS [Concomitant]
     Active Substance: APIXABAN
  3. MAGNESIUM [Concomitant]
     Active Substance: MAGNESIUM
  4. TYLENOL [Concomitant]
     Active Substance: ACETAMINOPHEN

REACTIONS (8)
  - Pain in extremity [None]
  - Burning sensation [None]
  - Hypoaesthesia [None]
  - Hypoaesthesia [None]
  - Burning sensation [None]
  - Pain in extremity [None]
  - Toothache [None]
  - Oral discomfort [None]

NARRATIVE: CASE EVENT DATE: 20240315
